FAERS Safety Report 8797333 (Version 4)
Quarter: 2012Q4

REPORT INFORMATION
  Report Type: 
  Country: JP (occurrence: JP)
  Receive Date: 20120919
  Receipt Date: 20121116
  Transmission Date: 20130627
  Serious: Yes (Death, Life-Threatening, Other)
  Sender: FDA-Public Use
  Company Number: JP-PFIZER INC-2012229920

PATIENT
  Age: 86 Year
  Sex: Male
  Weight: 48 kg

DRUGS (8)
  1. ALDACTONE A [Suspect]
     Indication: CARDIAC FAILURE
     Dosage: 25 mg, 1x/day
     Route: 048
     Dates: start: 20120819
  2. LASIX [Suspect]
     Indication: CARDIAC FAILURE
     Dosage: 20 mg, 1x/day
     Route: 048
     Dates: start: 20120819
  3. BAYASPIRIN [Suspect]
     Indication: PERCUTANEOUS CORONARY INTERVENTION
     Dosage: 100 mg, 1x/day
     Route: 048
     Dates: start: 20120819
  4. PLAVIX [Suspect]
     Indication: PERCUTANEOUS CORONARY INTERVENTION
     Dosage: 75 mg, 1x/day
     Route: 048
     Dates: start: 20120819
  5. TAKEPRON [Suspect]
     Indication: GASTRIC ULCER PROPHYLAXIS
     Dosage: 15 mg, 1x/day
     Route: 048
     Dates: start: 20120819
  6. SIGMART [Suspect]
     Indication: MYOCARDIAL INFARCTION
     Dosage: 5 mg, 3x/day
     Route: 048
     Dates: start: 20120819
  7. ARTIST [Concomitant]
     Indication: CARDIAC FAILURE
     Dosage: 2.5 mg, 2x/day
     Route: 048
     Dates: start: 20120819, end: 20121004
  8. SAMSCA [Concomitant]

REACTIONS (2)
  - Interstitial lung disease [Not Recovered/Not Resolved]
  - Multi-organ failure [Fatal]
